FAERS Safety Report 25382412 (Version 2)
Quarter: 2025Q3

REPORT INFORMATION
  Report Type: Report from Study
  Country: US (occurrence: US)
  Receive Date: 20250601
  Receipt Date: 20250810
  Transmission Date: 20251020
  Serious: Yes (Other)
  Sender: ALEXION PHARMACEUTICALS
  Company Number: US-AstraZeneca-CH-00879012A

PATIENT
  Sex: Female

DRUGS (1)
  1. STRENSIQ [Suspect]
     Active Substance: ASFOTASE ALFA
     Indication: Hypophosphatasia
     Route: 065

REACTIONS (8)
  - Colitis microscopic [Not Recovered/Not Resolved]
  - Ankylosing spondylitis [Unknown]
  - Dysphagia [Unknown]
  - Hiatus hernia [Unknown]
  - Hypersomnia [Unknown]
  - Poor quality sleep [Unknown]
  - Injection site scar [Unknown]
  - Fatigue [Unknown]

NARRATIVE: CASE EVENT DATE: 20230101
